FAERS Safety Report 6197804-4 (Version None)
Quarter: 2009Q2

REPORT INFORMATION
  Report Type: 
  Country: None (occurrence: None)
  Receive Date: 20090521
  Receipt Date: 20090511
  Transmission Date: 20091009
  Serious: Yes (Hospitalization, Other)
  Sender: FDA-Public Use
  Company Number: DE-AMGEN-QUU346424

PATIENT
  Sex: Female
  Weight: 62 kg

DRUGS (7)
  1. NEULASTA [Suspect]
     Indication: CHEMOTHERAPY
     Route: 058
     Dates: start: 20090131
  2. DEXAMETHASONE 4MG TAB [Concomitant]
     Route: 042
     Dates: start: 20090330
  3. GRANISETRON HCL [Concomitant]
     Route: 042
     Dates: start: 20090330
  4. MESNA [Concomitant]
     Dates: start: 20090330
  5. EPIRUBICIN [Concomitant]
     Route: 042
     Dates: start: 20090330
  6. CYCLOPHOSPHAMIDE [Concomitant]
     Route: 042
     Dates: start: 20090330
  7. TAXOL [Concomitant]

REACTIONS (3)
  - DRUG INEFFECTIVE [None]
  - LEUKOPENIA [None]
  - NEUTROPENIA [None]
